FAERS Safety Report 7765761-2 (Version None)
Quarter: 2011Q3

REPORT INFORMATION
  Report Type: 
  Country: None (occurrence: None)
  Receive Date: 20110921
  Receipt Date: 20110913
  Transmission Date: 20111222
  Serious: Yes (Hospitalization, Other)
  Sender: FDA-Public Use
  Company Number: IE-US-EMD SERONO, INC.-7082871

PATIENT
  Sex: Male

DRUGS (5)
  1. ACETAMINOPHEN [Concomitant]
  2. INOHIP [Concomitant]
  3. REBIF [Suspect]
     Indication: PRODUCT USED FOR UNKNOWN INDICATION
     Route: 058
     Dates: start: 19990111
  4. TOLTERODINE TARTRATE [Concomitant]
     Indication: INCONTINENCE
     Route: 048
  5. DICLOFENAC SODIUM [Concomitant]

REACTIONS (2)
  - VARICOSE VEIN [None]
  - CELLULITIS [None]
